FAERS Safety Report 25832061 (Version 1)
Quarter: 2025Q3

REPORT INFORMATION
  Report Type: Spontaneous
  Country: US (occurrence: None)
  Receive Date: 20250919
  Receipt Date: 20250919
  Transmission Date: 20251021
  Serious: No
  Sender: FDA-CTU
  Company Number: None

PATIENT
  Sex: Female

DRUGS (2)
  1. RASUVO [Suspect]
     Active Substance: METHOTREXATE SODIUM
     Indication: Product used for unknown indication
     Route: 058
  2. OTREXUP [Suspect]
     Active Substance: METHOTREXATE

REACTIONS (5)
  - Joint swelling [None]
  - Arthralgia [None]
  - Joint stiffness [None]
  - Musculoskeletal stiffness [None]
  - Therapy interrupted [None]
